FAERS Safety Report 18823103 (Version 7)
Quarter: 2024Q1

REPORT INFORMATION
  Report Type: Other
  Country: AT (occurrence: None)
  Receive Date: 20210202
  Receipt Date: 20240316
  Transmission Date: 20240410
  Serious: No
  Sender: FDA-Public Use
  Company Number: AT-ROCHE-2649703

PATIENT
  Age: 36 Year
  Sex: Female
  Weight: 90 kg

DRUGS (2)
  1. OCREVUS [Suspect]
     Active Substance: OCRELIZUMAB
     Indication: Relapsing-remitting multiple sclerosis
     Dosage: SUBSEQUENT DOSE RECEIVED IN FEB/2023
     Route: 042
     Dates: start: 20190712
  2. VITAMIN D3 [Concomitant]
     Active Substance: CHOLECALCIFEROL

REACTIONS (11)
  - Weight increased [Recovering/Resolving]
  - B-lymphocyte count decreased [Not Recovered/Not Resolved]
  - COVID-19 [Recovered/Resolved]
  - Limb discomfort [Recovered/Resolved]
  - Malaise [Recovered/Resolved]
  - Body temperature abnormal [Recovered/Resolved]
  - Nausea [Recovered/Resolved]
  - Abdominal pain upper [Recovered/Resolved]
  - Fatigue [Recovered/Resolved]
  - Vaccination failure [Recovered/Resolved]
  - Alopecia [Not Recovered/Not Resolved]

NARRATIVE: CASE EVENT DATE: 20201208
